FAERS Safety Report 8472890-7 (Version None)
Quarter: 2012Q2

REPORT INFORMATION
  Report Type: 
  Country: None (occurrence: None)
  Receive Date: 20120622
  Receipt Date: 20120622
  Transmission Date: 20120825
  Serious: Yes (Hospitalization, Disabling)
  Sender: FDA-Public Use
  Company Number: None

PATIENT
  Age: 59 Year
  Sex: Male

DRUGS (12)
  1. PERPHENAZINE [Concomitant]
  2. CEPHALEXIN [Concomitant]
  3. DIPHENHYDRAMINE 10 MG [Concomitant]
  4. BENZTROPINE MESYLATE [Concomitant]
  5. PROTEIN [Concomitant]
  6. DEPAKOTE [Suspect]
     Indication: MENTAL DISORDER
     Dosage: 1500 MG DAILY  PO
     Route: 048
     Dates: start: 20120101, end: 20120515
  7. LORAZEPAM [Concomitant]
  8. HALOPERIDOL [Concomitant]
  9. ALBUMIN (HUMAN) [Concomitant]
  10. BILIRUBIN [Concomitant]
  11. DIVALPROEX SODIUM [Concomitant]
  12. ZIPRASIDONE HCL [Concomitant]

REACTIONS (1)
  - HEPATIC ENZYME INCREASED [None]
